FAERS Safety Report 11980342 (Version 1)
Quarter: 2016Q1

REPORT INFORMATION
  Report Type: Other
  Country: DE (occurrence: DE)
  Receive Date: 20160129
  Receipt Date: 20160129
  Transmission Date: 20160526
  Serious: Yes (Hospitalization)
  Sender: FDA-Public Use
  Company Number: DE-MYLANLABS-2016M1002985

PATIENT

DRUGS (4)
  1. CITALOPRAM [Suspect]
     Active Substance: CITALOPRAM HYDROBROMIDE
     Dosage: 30MG/D BIS 18.06 DANN REDUKTION AUF 20MG,16.07 ABGESETZT
     Route: 048
     Dates: end: 20130716
  2. OLANZAPINE. [Suspect]
     Active Substance: OLANZAPINE
     Dosage: 10 MG, UNK
     Route: 048
     Dates: end: 20130612
  3. ORFIRIL [Suspect]
     Active Substance: VALPROIC ACID
     Dosage: 450 MG, UNK (450MG/D IM VERLAUF AUSGESCHLICHEN BIS 26.06.)
     Route: 048
     Dates: end: 20130626
  4. L-THYROXIN [Concomitant]
     Active Substance: LEVOTHYROXINE SODIUM
     Dosage: 25?G/D
     Route: 048

REACTIONS (1)
  - Generalised oedema [Not Recovered/Not Resolved]

NARRATIVE: CASE EVENT DATE: 20130412
